FAERS Safety Report 18877590 (Version 1)
Quarter: 2021Q1

REPORT INFORMATION
  Report Type: Spontaneous
  Country: IN (occurrence: IN)
  Receive Date: 20210211
  Receipt Date: 20210211
  Transmission Date: 20210420
  Serious: Yes (Death, Life-Threatening, Hospitalization, Other)
  Sender: FDA-Public Use
  Company Number: IN-ACCORD-217233

PATIENT
  Age: 12 Year
  Sex: Female
  Weight: 19.7 kg

DRUGS (6)
  1. CICLOSPORIN [Suspect]
     Active Substance: CYCLOSPORINE
     Indication: IMMUNE-MEDIATED CYTOPENIA
  2. ELTROMBOPAG [Concomitant]
     Active Substance: ELTROMBOPAG
     Indication: IMMUNE-MEDIATED CYTOPENIA
  3. TACROLIMUS. [Suspect]
     Active Substance: TACROLIMUS
     Indication: IMMUNE-MEDIATED CYTOPENIA
  4. RITUXIMAB. [Concomitant]
     Active Substance: RITUXIMAB
     Indication: IMMUNE-MEDIATED CYTOPENIA
  5. FILGRASTIM/GRANULOCYTE COLONY STIMULATING/LENOGRASTIM [Concomitant]
     Active Substance: GRANULOCYTE COLONY-STIMULATING FACTOR NOS
     Indication: IMMUNE-MEDIATED CYTOPENIA
  6. MYCOPHENOLIC ACID. [Concomitant]
     Active Substance: MYCOPHENOLIC ACID
     Indication: IMMUNE-MEDIATED CYTOPENIA

REACTIONS (11)
  - Metapneumovirus infection [Fatal]
  - Hypertension [Unknown]
  - Cardiac arrest [Fatal]
  - Circulatory collapse [Fatal]
  - Gingival hypertrophy [Fatal]
  - Pneumonia [Fatal]
  - Toxicity to various agents [Unknown]
  - Haemodynamic instability [Fatal]
  - Hypovolaemic shock [Fatal]
  - Post transplant distal limb syndrome [Unknown]
  - Gingival bleeding [Fatal]
